FAERS Safety Report 4706951-2 (Version None)
Quarter: 2005Q3

REPORT INFORMATION
  Report Type: 
  Country: None (occurrence: None)
  Receive Date: 20050701
  Receipt Date: 20050621
  Transmission Date: 20060218
  Serious: Yes (Death)
  Sender: FDA-Public Use
  Company Number: 2004236037US

PATIENT
  Age: 42 Year
  Sex: 0

DRUGS (3)
  1. XANAX [Suspect]
     Indication: ILL-DEFINED DISORDER
     Dates: end: 20030101
  2. DILTIAZEM [Suspect]
     Indication: ILL-DEFINED DISORDER
     Dates: end: 20030101
  3. ETHANOL (ETHANOL) [Suspect]
     Indication: ILL-DEFINED DISORDER
     Dates: end: 20030101

REACTIONS (3)
  - ALCOHOL USE [None]
  - COMPLETED SUICIDE [None]
  - MULTIPLE DRUG OVERDOSE [None]
